FAERS Safety Report 6627668-3 (Version None)
Quarter: 2010Q1

REPORT INFORMATION
  Report Type: 
  Country: None (occurrence: None)
  Receive Date: 20100308
  Receipt Date: 20100223
  Transmission Date: 20100710
  Serious: Yes (Congenital Anomaly)
  Sender: FDA-Public Use
  Company Number: 2010AP000379

PATIENT
  Sex: Male

DRUGS (1)
  1. PAROXETINE HYDROCHLORIDE [Suspect]
     Dosage: 80 MG; TRPL 60 MG; TRPL
     Route: 064

REACTIONS (4)
  - CONGENITAL ANOMALY [None]
  - CONGENITAL AORTIC ANOMALY [None]
  - MATERNAL DRUGS AFFECTING FOETUS [None]
  - PLAGIOCEPHALY [None]
